FAERS Safety Report 5299741-6 (Version None)
Quarter: 2007Q2

REPORT INFORMATION
  Report Type: 
  Country: None (occurrence: None)
  Receive Date: 20070410
  Receipt Date: 20070330
  Transmission Date: 20071010
  Serious: Yes (Hospitalization)
  Sender: FDA-Public Use
  Company Number: 230220K07CAN

PATIENT
  Sex: Female

DRUGS (8)
  1. REBIF [Suspect]
     Indication: RELAPSING-REMITTING MULTIPLE SCLEROSIS
     Dosage: 22 MCG
     Dates: start: 19990625
  2. ENDOCET (OXYCOCET) [Concomitant]
  3. GABAPENTIN [Concomitant]
  4. OXYCONTIN [Concomitant]
  5. PAXIL [Concomitant]
  6. ALL OTHER THERAPEUTIC PRODUCTS [Concomitant]
  7. ALL OTHER THERAPEUTIC PRODUCTS [Concomitant]
  8. DETROL [Concomitant]

REACTIONS (3)
  - DRUG INTOLERANCE [None]
  - INCISION SITE CELLULITIS [None]
  - INJECTION SITE ABSCESS [None]
